FAERS Safety Report 5779411-8 (Version None)
Quarter: 2008Q2

REPORT INFORMATION
  Report Type: 
  Country: None (occurrence: None)
  Receive Date: 20080619
  Receipt Date: 20080609
  Transmission Date: 20081010
  Serious: Yes (Hospitalization, Other)
  Sender: FDA-Public Use
  Company Number: JP-ABBOTT-08P-087-0458262-00

PATIENT
  Sex: Male

DRUGS (4)
  1. LEUPLIN FOR INJECTION KIT [Suspect]
     Indication: PROSTATE CANCER
     Route: 058
     Dates: start: 20060825, end: 20061020
  2. LEUPLIN FOR INJECTION KIT [Suspect]
     Route: 058
     Dates: start: 20071119, end: 20080212
  3. FRANDOL TAPE [Concomitant]
     Indication: DRUG USE FOR UNKNOWN INDICATION
     Route: 062
     Dates: start: 20071002
  4. BICALUTAMIDE [Concomitant]
     Indication: PROSTATE CANCER
     Route: 048
     Dates: start: 20060826, end: 20061117

REACTIONS (5)
  - ASPIRATION [None]
  - DYSPNOEA [None]
  - FALL [None]
  - INJURY [None]
  - PLATELET COUNT DECREASED [None]
